FAERS Safety Report 13247922 (Version 1)
Quarter: 2017Q1

REPORT INFORMATION
  Report Type: Spontaneous
  Country: US (occurrence: US)
  Receive Date: 20170217
  Receipt Date: 20170217
  Transmission Date: 20170428
  Serious: No
  Sender: FDA-Public Use
  Company Number: US-GLAXOSMITHKLINE-US2017022066

PATIENT
  Age: 88 Year
  Sex: Female

DRUGS (1)
  1. ABREVA [Suspect]
     Active Substance: DOCOSANOL
     Indication: NASAL ULCER
     Dosage: UNK
     Dates: start: 20170209

REACTIONS (2)
  - Product use issue [Unknown]
  - Drug administered at inappropriate site [Unknown]
